FAERS Safety Report 14655512 (Version 2)
Quarter: 2018Q3

REPORT INFORMATION
  Report Type: Spontaneous
  Country: US (occurrence: US)
  Receive Date: 20180319
  Receipt Date: 20180809
  Transmission Date: 20181010
  Serious: No
  Sender: FDA-Public Use
  Company Number: US-PFIZER INC-2018108306

PATIENT
  Age: 58 Year
  Sex: Female

DRUGS (2)
  1. IBRANCE [Suspect]
     Active Substance: PALBOCICLIB
     Indication: BREAST CANCER FEMALE
     Dosage: 125 MG, DAILY
     Route: 048
     Dates: start: 20171202, end: 201712
  2. IBRANCE [Suspect]
     Active Substance: PALBOCICLIB
     Indication: MALIGNANT PLEURAL EFFUSION
     Dosage: 125 MG, DAILY
     Route: 048
     Dates: start: 20171206

REACTIONS (6)
  - Dry skin [Unknown]
  - Dry mouth [Unknown]
  - Hepatic enzyme increased [Unknown]
  - Fatigue [Unknown]
  - Epistaxis [Unknown]
  - Pain [Unknown]

NARRATIVE: CASE EVENT DATE: 20180313
